FAERS Safety Report 9261979 (Version 1)
Quarter: 2013Q2

REPORT INFORMATION
  Report Type: Spontaneous
  Country: US (occurrence: US)
  Receive Date: 20130429
  Receipt Date: 20130429
  Transmission Date: 20140414
  Serious: Yes (Hospitalization)
  Sender: FDA-Public Use
  Company Number: US-MYLANLABS-2013S1008709

PATIENT
  Age: 18 Year
  Sex: Female

DRUGS (1)
  1. KETAMINE [Suspect]
     Dosage: UP TO THREE TIMES PER WEEK FOR THE PAST 4 YEARS
     Route: 055

REACTIONS (7)
  - Biliary dilatation [Recovering/Resolving]
  - Drug abuse [Recovering/Resolving]
  - Dysuria [Unknown]
  - Micturition urgency [Unknown]
  - Pollakiuria [Unknown]
  - Abdominal pain [Unknown]
  - Incorrect route of drug administration [Unknown]
